FAERS Safety Report 9554324 (Version 1)
Quarter: 2013Q3

REPORT INFORMATION
  Report Type: Spontaneous
  Country: ES (occurrence: None)
  Receive Date: 20130726
  Receipt Date: 20130726
  Transmission Date: 20140515
  Serious: Yes (Other)
  Sender: FDA-Public Use
  Company Number: E2B_00000889

PATIENT
  Age: 51 Year
  Sex: Male

DRUGS (4)
  1. QUETIAPINE (UNKNOWN) [Suspect]
     Indication: PRODUCT USED FOR UNKNOWN INDICATION
  2. VENLAFAXINE (UNKNOWN) (VENLAFAXINE HYDROCHLORIDE) [Concomitant]
  3. PREGABALIN (UNKNOWN) [Concomitant]
  4. SIMVASTATIN (UNKNOWN) (SIMVASTATIN) UNK, UNKUNK [Concomitant]

REACTIONS (1)
  - Thyroxine free decreased [None]
